FAERS Safety Report 12717100 (Version 1)
Quarter: 2016Q3

REPORT INFORMATION
  Report Type: Spontaneous
  Country: AR (occurrence: AR)
  Receive Date: 20160906
  Receipt Date: 20160906
  Transmission Date: 20161109
  Serious: Yes (Hospitalization, Other)
  Sender: FDA-Public Use
  Company Number: AR-MYLANLABS-2016M1037259

PATIENT

DRUGS (6)
  1. BELATACEPT [Suspect]
     Active Substance: BELATACEPT
     Indication: IMMUNOSUPPRESSANT DRUG THERAPY
     Dosage: 5 MG/KG ON DAYS 0, 14, AND 28 AND ONCE PER MONTH THEREAFTER
     Route: 065
  2. MEPREDNISONE [Concomitant]
     Active Substance: MEPREDNISONE
     Indication: IMMUNOSUPPRESSANT DRUG THERAPY
     Dosage: 4 MG
     Route: 065
  3. TACROLIMUS. [Suspect]
     Active Substance: TACROLIMUS
     Indication: IMMUNOSUPPRESSANT DRUG THERAPY
     Dosage: TROUGH LEVEL: 5-8 NG/ML
     Route: 065
  4. BASILIXIMAB [Concomitant]
     Active Substance: BASILIXIMAB
     Indication: IMMUNOSUPPRESSANT DRUG THERAPY
     Route: 065
  5. MYCOPHENOLATE SODIUM [Concomitant]
     Active Substance: MYCOPHENOLATE SODIUM
     Indication: IMMUNOSUPPRESSANT DRUG THERAPY
     Dosage: 1440 MG/DAY
     Route: 065
  6. BELATACEPT [Suspect]
     Active Substance: BELATACEPT
     Route: 065

REACTIONS (2)
  - Neurotoxicity [Recovered/Resolved]
  - Psoriasis [Recovered/Resolved]
